FAERS Safety Report 5145172-9 (Version None)
Quarter: 2006Q4

REPORT INFORMATION
  Report Type: 
  Country: None (occurrence: None)
  Receive Date: 20061107
  Receipt Date: 20061026
  Transmission Date: 20070319
  Serious: Yes (Hospitalization)
  Sender: FDA-Public Use
  Company Number: US-ELI_LILLY_AND_COMPANY-US200610004948

PATIENT
  Age: 79 Year
  Sex: Female

DRUGS (4)
  1. FORTEO [Suspect]
     Indication: OSTEOPOROSIS
     Dosage: 20 UG, DAILY (1/D)
     Dates: start: 20060925
  2. FOSAMAX                                 /ITA/ [Concomitant]
     Dosage: 70 MG, WEEKLY (1/W)
     Route: 048
  3. DAYPRO                                  /USA/ [Concomitant]
     Dosage: 1500 MG, DAILY (1/D)
  4. OXYCONTIN [Concomitant]
     Indication: BACK PAIN
     Dosage: 20 MG, 2/D
     Dates: end: 20061001

REACTIONS (2)
  - BACK PAIN [None]
  - FRACTURED SACRUM [None]
